FAERS Safety Report 7887568-8 (Version None)
Quarter: 2011Q4

REPORT INFORMATION
  Report Type: 
  Country: None (occurrence: None)
  Receive Date: 20111103
  Receipt Date: 20111024
  Transmission Date: 20120403
  Serious: No
  Sender: FDA-Public Use
  Company Number: US-BIOGENIDEC-2011BI019201

PATIENT
  Age: 32 Year
  Sex: Female

DRUGS (1)
  1. TYSABRI [Suspect]
     Indication: MULTIPLE SCLEROSIS
     Route: 042
     Dates: start: 20101104

REACTIONS (9)
  - ABDOMINAL PAIN UPPER [None]
  - PAIN IN EXTREMITY [None]
  - INCORRECT DRUG ADMINISTRATION RATE [None]
  - SINUSITIS [None]
  - HYPERSENSITIVITY [None]
  - BURNING SENSATION [None]
  - PARAESTHESIA [None]
  - FATIGUE [None]
  - PAIN [None]
